FAERS Safety Report 6218904-6 (Version None)
Quarter: 2009Q2

REPORT INFORMATION
  Report Type: 
  Country: None (occurrence: None)
  Receive Date: 20090608
  Receipt Date: 20090526
  Transmission Date: 20091009
  Serious: Yes (Other)
  Sender: FDA-Public Use
  Company Number: US-MYLANLABS-2009S1009238

PATIENT
  Age: 48 Year
  Sex: Female

DRUGS (6)
  1. ZOCOR [Interacting]
     Indication: HYPERLIPIDAEMIA
     Dates: end: 20060601
  2. LEVOTHYROXINE SODIUM [Suspect]
     Indication: HYPOTHYROIDISM
     Dates: start: 20041201
  3. LEVOTHYROXINE SODIUM [Interacting]
     Dates: start: 20041201
  4. LEVOTHYROXINE SODIUM [Interacting]
     Dates: start: 20041201
  5. VYTORIN [Interacting]
     Indication: HYPERLIPIDAEMIA
     Dosage: EZETIMIBE 10MG/SIMVASTATIN 40MG
     Dates: start: 20060601
  6. ESCITALOPRAM [Concomitant]

REACTIONS (3)
  - BLOOD CREATINE PHOSPHOKINASE INCREASED [None]
  - DRUG INTERACTION [None]
  - MYOPATHY [None]
